FAERS Safety Report 10401640 (Version 1)
Quarter: 2014Q3

REPORT INFORMATION
  Report Type: Spontaneous
  Country: US (occurrence: None)
  Receive Date: 20140820
  Receipt Date: 20140820
  Transmission Date: 20150326
  Serious: No
  Sender: FDA-Public Use
  Company Number: None

PATIENT
  Age: 67 Year
  Sex: Male

DRUGS (1)
  1. TAFINLAR [Suspect]
     Active Substance: DABRAFENIB MESYLATE
     Indication: MALIGNANT MELANOMA
     Route: 048
     Dates: start: 20140529, end: 20140818

REACTIONS (4)
  - Pyrexia [None]
  - Visual impairment [None]
  - Chills [None]
  - Fatigue [None]

NARRATIVE: CASE EVENT DATE: 20140729
